FAERS Safety Report 8117835-4 (Version None)
Quarter: 2012Q1

REPORT INFORMATION
  Report Type: 
  Country: None (occurrence: None)
  Receive Date: 20120131
  Receipt Date: 20120118
  Transmission Date: 20120608
  Serious: Yes (Other)
  Sender: FDA-Public Use
  Company Number: US-2011-10926

PATIENT
  Age: 45 Year
  Sex: Female

DRUGS (3)
  1. OPC-41061 (TOLVAPTAN) TABLET, 30MG MILLIGRAM(S) [Suspect]
     Indication: CONGENITAL CYSTIC KIDNEY DISEASE
     Dosage: 90 MG MILLIGRAM(S), DAILY DOSE, ORAL
     Route: 048
     Dates: start: 20110430, end: 20111115
  2. NOMEGESTROL (NOMEGESTROL) [Concomitant]
  3. RAMIPRIL [Concomitant]

REACTIONS (4)
  - TRANSAMINASES INCREASED [None]
  - ASPARTATE AMINOTRANSFERASE INCREASED [None]
  - HEPATITIS A VIRUS TEST POSITIVE [None]
  - ALANINE AMINOTRANSFERASE INCREASED [None]
